FAERS Safety Report 25818531 (Version 1)
Quarter: 2025Q3

REPORT INFORMATION
  Report Type: Report from Study
  Country: US (occurrence: US)
  Receive Date: 20250918
  Receipt Date: 20250918
  Transmission Date: 20251020
  Serious: Yes (Other)
  Sender: ABBVIE
  Company Number: US-ABBVIE-6455891

PATIENT
  Age: 60 Year
  Sex: Female

DRUGS (2)
  1. SKYRIZI [Suspect]
     Active Substance: RISANKIZUMAB-RZAA
     Indication: Guttate psoriasis
     Route: 058
     Dates: start: 2024
  2. PREDNISONE [Suspect]
     Active Substance: PREDNISONE
     Indication: Inner ear disorder
     Route: 065
     Dates: start: 202508

REACTIONS (3)
  - Deafness unilateral [Recovering/Resolving]
  - Off label use [Unknown]
  - Ear disorder [Unknown]

NARRATIVE: CASE EVENT DATE: 20240101
